FAERS Safety Report 12801027 (Version 2)
Quarter: 2017Q3

REPORT INFORMATION
  Report Type: Report from Study
  Country: US (occurrence: US)
  Receive Date: 20161003
  Receipt Date: 20170809
  Transmission Date: 20171127
  Serious: Yes (Other)
  Sender: FDA-Public Use
  Company Number: US-AMGEN-USASL2016133159

PATIENT
  Age: 68 Year
  Sex: Female

DRUGS (3)
  1. REMICADE [Concomitant]
     Active Substance: INFLIXIMAB
     Indication: PRODUCT USED FOR UNKNOWN INDICATION
     Dosage: UNK
     Route: 065
  2. ENBREL [Suspect]
     Active Substance: ETANERCEPT
     Dosage: 50 MG, QWK
     Route: 065
     Dates: start: 2016
  3. ENBREL [Suspect]
     Active Substance: ETANERCEPT
     Indication: RHEUMATOID ARTHRITIS
     Dosage: UNK UNK, QWK
     Route: 065

REACTIONS (19)
  - Hysterectomy [Unknown]
  - Dizziness [Unknown]
  - Drug effect decreased [Unknown]
  - Nausea [Unknown]
  - Asthenia [Unknown]
  - Rheumatoid arthritis [Unknown]
  - Sinusitis [Unknown]
  - Injection site pruritus [Unknown]
  - Drug dose omission [Unknown]
  - Injection site pain [Unknown]
  - Injection site erythema [Unknown]
  - Syncope [Unknown]
  - Mass [Unknown]
  - Joint surgery [Unknown]
  - Pallor [Unknown]
  - Injection site discomfort [Unknown]
  - Staphylococcal infection [Unknown]
  - Pruritus generalised [Unknown]
  - Injection site swelling [Unknown]

NARRATIVE: CASE EVENT DATE: 2016
